FAERS Safety Report 9008139 (Version 1)
Quarter: 2012Q4

REPORT INFORMATION
  Report Type: Spontaneous
  Country: JP (occurrence: None)
  Receive Date: 20121227
  Receipt Date: 20121227
  Transmission Date: 20130627
  Serious: Yes (Other)
  Sender: FDA-Public Use
  Company Number: 2012-004443

PATIENT

DRUGS (1)
  1. BENET (RISEDRONATE SODIUM) TABLET [Suspect]
     Route: 048

REACTIONS (1)
  - Abscess oral [None]
